FAERS Safety Report 12277156 (Version 1)
Quarter: 2016Q2

REPORT INFORMATION
  Report Type: Report from Study
  Country: US (occurrence: US)
  Receive Date: 20160418
  Receipt Date: 20160418
  Transmission Date: 20160815
  Serious: Yes (Other)
  Sender: FDA-Public Use
  Company Number: US-BIOGEN-2015BI057879

PATIENT
  Age: 42 Year
  Sex: Female

DRUGS (3)
  1. AVONEX [Suspect]
     Active Substance: INTERFERON BETA-1A
     Route: 030
     Dates: start: 20150601
  2. AVONEX [Suspect]
     Active Substance: INTERFERON BETA-1A
     Indication: MULTIPLE SCLEROSIS
     Route: 030
     Dates: start: 19960101, end: 20141231
  3. AVONEX [Suspect]
     Active Substance: INTERFERON BETA-1A
     Route: 030
     Dates: start: 20160408

REACTIONS (17)
  - Blindness unilateral [Not Recovered/Not Resolved]
  - Dysphonia [Recovered/Resolved]
  - Mobility decreased [Recovered/Resolved]
  - Vision blurred [Recovered/Resolved]
  - Abasia [Recovered/Resolved]
  - Influenza like illness [Not Recovered/Not Resolved]
  - Dysphagia [Not Recovered/Not Resolved]
  - Feeling cold [Recovered/Resolved]
  - Speech disorder [Recovered/Resolved]
  - Muscle spasms [Recovered/Resolved]
  - Migraine [Recovered/Resolved]
  - Memory impairment [Recovered/Resolved]
  - Nuclear magnetic resonance imaging abnormal [Not Recovered/Not Resolved]
  - Hypoacusis [Recovered/Resolved]
  - Eye discharge [Recovered/Resolved]
  - General symptom [Recovered/Resolved]
  - Multiple sclerosis relapse [Recovered/Resolved]

NARRATIVE: CASE EVENT DATE: 19960101
